FAERS Safety Report 5856683-2 (Version None)
Quarter: 2008Q3

REPORT INFORMATION
  Report Type: 
  Country: None (occurrence: None)
  Receive Date: 20080825
  Receipt Date: 20080820
  Transmission Date: 20090109
  Serious: Yes (Death, Other)
  Sender: FDA-Public Use
  Company Number: IT-CELGENEUS-083-21880-08081040

PATIENT
  Sex: Female

DRUGS (3)
  1. REVLIMID [Suspect]
     Indication: MULTIPLE MYELOMA
     Route: 048
     Dates: start: 20080430, end: 20080606
  2. DOXORUBICIN HCL [Concomitant]
     Indication: CHEMOTHERAPY
     Route: 065
  3. DEXAMETHASONE TAB [Concomitant]
     Indication: CHEMOTHERAPY
     Route: 065
     Dates: start: 20080430

REACTIONS (7)
  - APLASIA [None]
  - DYSARTHRIA [None]
  - DYSPHAGIA [None]
  - DYSPHONIA [None]
  - ENCEPHALOPATHY [None]
  - MUCOSAL INFLAMMATION [None]
  - PNEUMONIA [None]
